FAERS Safety Report 9816299 (Version 2)
Quarter: 2014Q1

REPORT INFORMATION
  Report Type: Spontaneous
  Country: US (occurrence: US)
  Receive Date: 20140114
  Receipt Date: 20140117
  Transmission Date: 20141002
  Serious: Yes (Hospitalization, Other)
  Sender: FDA-Public Use
  Company Number: US-RB-061755-14

PATIENT
  Age: 65 Year
  Sex: Male

DRUGS (1)
  1. MUCINEX SINUS MAX SEVERE CONGESTION CAPLET [Suspect]
     Indication: PRODUCT USED FOR UNKNOWN INDICATION
     Dosage: ONE CAPLET. LAST USED ON 28-DEC-2013
     Route: 048
     Dates: start: 20131228

REACTIONS (13)
  - Hypersensitivity [Recovered/Resolved]
  - Loss of consciousness [Recovered/Resolved]
  - Hypertension [Recovered/Resolved]
  - Throat tightness [Recovered/Resolved]
  - Swollen tongue [Recovered/Resolved]
  - Confusional state [Recovered/Resolved]
  - Dyspnoea [Recovered/Resolved]
  - Somnolence [Recovered/Resolved]
  - Urticaria [Recovered/Resolved]
  - Erythema [Recovered/Resolved]
  - Unevaluable event [Recovered/Resolved]
  - Headache [Recovered/Resolved]
  - Rash [Recovered/Resolved]
